FAERS Safety Report 7791371-7 (Version None)
Quarter: 2011Q4

REPORT INFORMATION
  Report Type: 
  Country: None (occurrence: None)
  Receive Date: 20111003
  Receipt Date: 20110920
  Transmission Date: 20120403
  Serious: Yes (Hospitalization, Other)
  Sender: FDA-Public Use
  Company Number: US-RANBAXY-2010RR-40585

PATIENT
  Sex: Female

DRUGS (6)
  1. CIPROFLOXACIN [Suspect]
     Dosage: 500 MG, QID
     Route: 065
     Dates: start: 20051224
  2. LEVAQUIN [Suspect]
     Indication: URINARY TRACT INFECTION
     Dosage: 500 MG, UNK
     Route: 048
     Dates: start: 20080922
  3. LEXAPRO [Concomitant]
     Indication: ANTIDEPRESSANT THERAPY
  4. LEXAPRO [Concomitant]
     Indication: ANXIETY
     Dosage: UNK
     Route: 065
     Dates: start: 20040101
  5. CIPROFLOXACIN [Suspect]
     Dosage: 500 MG, BID
     Route: 048
  6. CIPROFLOXACIN [Suspect]
     Indication: URINARY TRACT INFECTION
     Dosage: 500 MG, QD
     Route: 065
     Dates: start: 20080101

REACTIONS (3)
  - TENDONITIS [None]
  - EPICONDYLITIS [None]
  - JOINT SWELLING [None]
